FAERS Safety Report 7935682-0 (Version None)
Quarter: 2011Q4

REPORT INFORMATION
  Report Type: 
  Country: None (occurrence: None)
  Receive Date: 20111121
  Receipt Date: 20111107
  Transmission Date: 20120403
  Serious: Yes (Other)
  Sender: FDA-Public Use
  Company Number: 2011P1010110

PATIENT
  Age: 10 Year
  Sex: Female
  Weight: 27.2158 kg

DRUGS (1)
  1. MALATHION [Suspect]
     Indication: LICE INFESTATION
     Dosage: 1 BOTTLE;X1; TOP
     Route: 061
     Dates: start: 20111029, end: 20111029

REACTIONS (1)
  - MASS [None]
